FAERS Safety Report 23427969 (Version 1)
Quarter: 2024Q1

REPORT INFORMATION
  Report Type: Spontaneous
  Country: US (occurrence: US)
  Receive Date: 20240122
  Receipt Date: 20240122
  Transmission Date: 20240410
  Serious: Yes (Other)
  Sender: FDA-Public Use
  Company Number: US-MYLANLABS-2024M1006686

PATIENT
  Sex: Female
  Weight: 61.23 kg

DRUGS (5)
  1. GABAPENTIN [Suspect]
     Active Substance: GABAPENTIN
     Indication: Migraine
     Dosage: 100 MILLIGRAM, QD
     Route: 048
  2. LISINOPRIL [Concomitant]
     Active Substance: LISINOPRIL
     Indication: Hypertension
     Dosage: 5 MILLIGRAM UNK
     Route: 048
  3. AMLODIPINE [Concomitant]
     Active Substance: AMLODIPINE BESYLATE
     Indication: Hypertension
     Dosage: 5 MILLIGRAM UNK
     Route: 048
  4. ASPIRIN [Concomitant]
     Active Substance: ASPIRIN
     Indication: Product used for unknown indication
     Dosage: 21 MILLIGRAM UNK
     Route: 048
  5. VYNDAMAX [Concomitant]
     Active Substance: TAFAMIDIS
     Indication: Amyloidosis
     Dosage: 61 MILLIGRAM UNK
     Route: 048

REACTIONS (4)
  - Gastrointestinal haemorrhage [Unknown]
  - Haematemesis [Unknown]
  - Full blood count decreased [Unknown]
  - Product dose omission issue [Unknown]
